FAERS Safety Report 13236917 (Version 1)
Quarter: 2017Q1

REPORT INFORMATION
  Report Type: Spontaneous
  Country: SE (occurrence: SE)
  Receive Date: 20170215
  Receipt Date: 20170215
  Transmission Date: 20170428
  Serious: Yes (Death)
  Sender: FDA-Public Use
  Company Number: SE-TEVA-737385ISR

PATIENT
  Age: 21 Year
  Sex: Male

DRUGS (1)
  1. DIMOR [Suspect]
     Active Substance: LOPERAMIDE
     Route: 065

REACTIONS (2)
  - Toxicity to various agents [Fatal]
  - Sleep apnoea syndrome [Fatal]

NARRATIVE: CASE EVENT DATE: 20130319
